FAERS Safety Report 23447616 (Version 3)
Quarter: 2024Q1

REPORT INFORMATION
  Report Type: Spontaneous
  Country: US (occurrence: US)
  Receive Date: 20240126
  Receipt Date: 20240324
  Transmission Date: 20240410
  Serious: Yes (Other)
  Sender: FDA-Public Use
  Company Number: US-MALLINCKRODT-MNK202400434

PATIENT
  Sex: Female
  Weight: 84 kg

DRUGS (2)
  1. CORTICOTROPIN [Suspect]
     Active Substance: CORTICOTROPIN
     Indication: Pulmonary sarcoidosis
     Route: 058
  2. CORTICOTROPIN [Suspect]
     Active Substance: CORTICOTROPIN
     Indication: Sarcoidosis

REACTIONS (12)
  - Pulmonary sarcoidosis [Not Recovered/Not Resolved]
  - Condition aggravated [Not Recovered/Not Resolved]
  - Weight decreased [Not Recovered/Not Resolved]
  - Tremor [Not Recovered/Not Resolved]
  - Haemoptysis [Recovered/Resolved]
  - Headache [Not Recovered/Not Resolved]
  - Insomnia [Recovering/Resolving]
  - Injection site discomfort [Unknown]
  - Injection site haemorrhage [Unknown]
  - Injection site pain [Unknown]
  - Fatigue [Not Recovered/Not Resolved]
  - Asthenia [Not Recovered/Not Resolved]
